FAERS Safety Report 5757401-9 (Version None)
Quarter: 2008Q2

REPORT INFORMATION
  Report Type: 
  Country: None (occurrence: None)
  Receive Date: 20080603
  Receipt Date: 20080521
  Transmission Date: 20081010
  Serious: Yes (Death)
  Sender: FDA-Public Use
  Company Number: RO-ELI_LILLY_AND_COMPANY-RO200805004236

PATIENT
  Sex: Male
  Weight: 100 kg

DRUGS (6)
  1. LISPRO 25LIS75NPL [Suspect]
     Indication: TYPE 2 DIABETES MELLITUS
     Dosage: 28 UNK, UNK
     Route: 058
     Dates: start: 20070103, end: 20080101
  2. LISPRO 25LIS75NPL [Suspect]
     Dosage: 20 IU (12 IU + 8 IU), UNKNOWN
     Route: 065
     Dates: start: 20080501
  3. ORTANOL [Concomitant]
     Indication: GASTRIC CANCER
     Dosage: 20 MG, UNKNOWN
     Route: 065
     Dates: start: 20080320
  4. ISOPTIN [Concomitant]
     Indication: BLOOD PRESSURE INCREASED
     Dosage: 250 MG, UNKNOWN
     Route: 065
     Dates: start: 19960101
  5. CAPTOPRIL [Concomitant]
     Indication: BLOOD PRESSURE INCREASED
     Dosage: 50 MG, UNKNOWN
     Route: 065
     Dates: start: 20010101
  6. SIMVOR [Concomitant]
     Indication: DYSLIPIDAEMIA
     Dosage: 40 MG, UNKNOWN
     Route: 065
     Dates: start: 20040101

REACTIONS (1)
  - ABDOMINAL NEOPLASM [None]
